FAERS Safety Report 15315643 (Version 1)
Quarter: 2018Q3

REPORT INFORMATION
  Report Type: Spontaneous
  Country: AU (occurrence: AU)
  Receive Date: 20180824
  Receipt Date: 20180824
  Transmission Date: 20181010
  Serious: Yes (Hospitalization, Other)
  Sender: FDA-Public Use
  Company Number: PHHY2018AU075309

PATIENT
  Age: 31 Year
  Sex: Male

DRUGS (2)
  1. CODEINE+IBUPROFEN [Suspect]
     Active Substance: CODEINE\IBUPROFEN
     Indication: PAIN
     Dosage: PEAKED AT APPROXIMATELY 100 DF QD (EQUIVALENT TO 20 G IBUPROFEN AND 1.3 G OF CODEINE)
     Route: 065
  2. CODEINE+IBUPROFEN [Suspect]
     Active Substance: CODEINE\IBUPROFEN
     Dosage: 9 G OF IBUPROFEN AND 576 MG CODEINE DAILY
     Route: 065

REACTIONS (5)
  - Nephropathy toxic [Recovering/Resolving]
  - Renal failure [Recovering/Resolving]
  - Anuria [Recovering/Resolving]
  - Drug abuse [Unknown]
  - End stage renal disease [Recovering/Resolving]
